FAERS Safety Report 5038909-0 (Version None)
Quarter: 2006Q2

REPORT INFORMATION
  Report Type: 
  Country: None (occurrence: None)
  Receive Date: 20060623
  Receipt Date: 20060614
  Transmission Date: 20061013
  Serious: Yes (Life-Threatening, Other)
  Sender: FDA-Public Use
  Company Number: 222055

PATIENT
  Age: 63 Year
  Sex: Male

DRUGS (1)
  1. ACTIVASE [Suspect]
     Indication: ISCHAEMIC STROKE
     Dosage: 90 MG, SINGLE, INTRAVENOUS
     Route: 042
     Dates: start: 20060206, end: 20060206

REACTIONS (8)
  - ATRIAL FIBRILLATION [None]
  - EPILEPSY [None]
  - HYPOTENSION [None]
  - HYPOVOLAEMIC SHOCK [None]
  - ISCHAEMIC CEREBRAL INFARCTION [None]
  - PNEUMONIA ASPIRATION [None]
  - RENAL HAEMORRHAGE [None]
  - SHOCK HAEMORRHAGIC [None]
